FAERS Safety Report 10766225 (Version 1)
Quarter: 2015Q1

REPORT INFORMATION
  Report Type: Spontaneous
  Country: IT (occurrence: IT)
  Receive Date: 20150205
  Receipt Date: 20150205
  Transmission Date: 20150721
  Serious: Yes (Other)
  Sender: FDA-Public Use
  Company Number: IT-WATSON-2015-01241

PATIENT
  Age: 73 Year
  Sex: Female

DRUGS (1)
  1. PRAMIPEXOLE (UNKNOWN) [Suspect]
     Active Substance: PRAMIPEXOLE
     Indication: TREMOR
     Dosage: 0.54 MG, DAILY
     Route: 048
     Dates: start: 20141216, end: 20141217

REACTIONS (2)
  - Agitation [Recovering/Resolving]
  - Confusional state [Recovering/Resolving]

NARRATIVE: CASE EVENT DATE: 20141217
